FAERS Safety Report 14270306 (Version 1)
Quarter: 2017Q4

REPORT INFORMATION
  Report Type: Report from Study
  Country: JP (occurrence: JP)
  Receive Date: 20171211
  Receipt Date: 20171211
  Transmission Date: 20180321
  Serious: Yes (Life-Threatening, Hospitalization)
  Sender: FDA-Public Use
  Company Number: JP-OTSUKA-JP-2013-10634

PATIENT
  Age: 83 Year
  Sex: Female
  Weight: 39 kg

DRUGS (4)
  1. ARIPIPRAZOLE. [Suspect]
     Active Substance: ARIPIPRAZOLE
     Indication: DEMENTIA ALZHEIMER^S TYPE
     Dosage: 6 MG, QD
     Route: 048
     Dates: start: 20111104
  2. PEROSPIRONE HYDROCHLORIDE [Concomitant]
     Active Substance: PEROSPIRONE HYDROCHLORIDE
     Dosage: 12 MG, QD
     Route: 048
     Dates: start: 20120806
  3. ARIPIPRAZOLE. [Suspect]
     Active Substance: ARIPIPRAZOLE
     Indication: DEMENTIA ALZHEIMER^S TYPE
     Dosage: 6 MG, QD
     Route: 048
     Dates: start: 20111104
  4. PEROSPIRONE [Concomitant]
     Active Substance: PEROSPIRONE
     Dosage: PEROSPIRONE HCL TABS
     Dates: start: 20120806

REACTIONS (1)
  - Pneumonia aspiration [Recovering/Resolving]

NARRATIVE: CASE EVENT DATE: 20121119
